FAERS Safety Report 8136456-0 (Version None)
Quarter: 2012Q1

REPORT INFORMATION
  Report Type: 
  Country: None (occurrence: None)
  Receive Date: 20120214
  Receipt Date: 20120201
  Transmission Date: 20120608
  Serious: Yes (Other)
  Sender: FDA-Public Use
  Company Number: CHPA2012US002236

PATIENT
  Age: 85 Year
  Sex: Female

DRUGS (2)
  1. GAS-X CHEWABLE TABLETS UNKNOWN [Suspect]
     Indication: DYSPEPSIA
     Dosage: ONCE OR TWICE PER DAY
     Route: 048
     Dates: end: 20120101
  2. GAS-X PREVENTION [Suspect]
     Indication: DYSPEPSIA
     Dosage: ONCE OR TWICE PER DAY
     Route: 048
     Dates: end: 20120101

REACTIONS (7)
  - OFF LABEL USE [None]
  - VOMITING [None]
  - DIARRHOEA [None]
  - LOSS OF CONSCIOUSNESS [None]
  - SOMNOLENCE [None]
  - NAUSEA [None]
  - GASTROENTERITIS VIRAL [None]
